FAERS Safety Report 25379515 (Version 2)
Quarter: 2025Q4

REPORT INFORMATION
  Report Type: Report from Study
  Country: EU (occurrence: EU)
  Receive Date: 20250530
  Receipt Date: 20251024
  Transmission Date: 20260117
  Serious: Yes (Hospitalization, Other)
  Sender: PFIZER
  Company Number: EU-PFM-2025-02624

PATIENT
  Age: 94 Year
  Sex: Female
  Weight: 58.7 kg

DRUGS (8)
  1. ENCORAFENIB [Suspect]
     Active Substance: ENCORAFENIB
     Indication: Metastatic malignant melanoma
     Dosage: 225 MG, DAILY
     Route: 065
     Dates: start: 20250407
  2. ENCORAFENIB [Suspect]
     Active Substance: ENCORAFENIB
     Indication: BRAF V600E mutation positive
     Dosage: 300 MG, DAILY
     Dates: start: 20250505, end: 20250707
  3. ENCORAFENIB [Suspect]
     Active Substance: ENCORAFENIB
     Dosage: 300 MG, DAILY
     Dates: start: 20250710
  4. BINIMETINIB [Suspect]
     Active Substance: BINIMETINIB
     Indication: Metastatic malignant melanoma
     Dosage: 60 MG, DAILY
     Dates: start: 20250407, end: 20250523
  5. BINIMETINIB [Suspect]
     Active Substance: BINIMETINIB
     Indication: BRAF V600E mutation positive
     Dosage: 60 MG, DAILY
     Dates: start: 20250901
  6. NIVOLUMAB [Concomitant]
     Active Substance: NIVOLUMAB
     Indication: Malignant melanoma
     Dosage: 48 MG, EVERY 4 WEEK
     Route: 065
     Dates: start: 20240222
  7. GLYCEROL/VASELINE/PARAFFINE [Concomitant]
     Indication: Radiation skin injury
     Dosage: 1 DF, PRN
     Route: 065
     Dates: start: 20250327
  8. BETAMETHASONE [Concomitant]
     Active Substance: BETAMETHASONE
     Indication: Radiation skin injury
     Dosage: 1 DF, DAILY
     Route: 065
     Dates: start: 20250327

REACTIONS (2)
  - Splenic haemorrhage [Not Recovered/Not Resolved]
  - Visual acuity reduced [Recovered/Resolved]

NARRATIVE: CASE EVENT DATE: 20250522
